FAERS Safety Report 17426887 (Version 1)
Quarter: 2020Q1

REPORT INFORMATION
  Report Type: Report from Study
  Country: US (occurrence: US)
  Receive Date: 20200218
  Receipt Date: 20200218
  Transmission Date: 20200409
  Serious: Yes (Hospitalization)
  Sender: FDA-Public Use
  Company Number: US-ROCHE-2549826

PATIENT
  Age: 57 Year
  Sex: Male

DRUGS (16)
  1. LYRICA [Concomitant]
     Active Substance: PREGABALIN
     Route: 065
     Dates: start: 201803
  2. BEVACIZUMAB. [Suspect]
     Active Substance: BEVACIZUMAB
     Indication: COLORECTAL CANCER METASTATIC
     Dosage: THERAPY DURATION: 1 YEAR 4 MONTHS 28 DAYS
     Route: 042
     Dates: start: 20180908, end: 20200204
  3. GABAPENTIN. [Concomitant]
     Active Substance: GABAPENTIN
     Route: 065
     Dates: start: 201801
  4. KEFLEX [Concomitant]
     Active Substance: CEPHALEXIN
     Route: 065
     Dates: start: 2017
  5. 5-FLUOROURACIL [FLUOROURACIL] [Suspect]
     Active Substance: FLUOROURACIL
     Indication: COLORECTAL CANCER METASTATIC
     Dosage: THERAPY DURATION:1 YEAR 4 MONTHS 28 DAYS
     Route: 040
     Dates: start: 20180908, end: 20200204
  6. LEUCOVORIN [FOLINIC ACID] [Suspect]
     Active Substance: LEUCOVORIN
     Indication: COLORECTAL CANCER METASTATIC
     Route: 042
  7. OMEPRAZOLE. [Concomitant]
     Active Substance: OMEPRAZOLE
     Route: 065
     Dates: start: 201707
  8. IMODIUM [Concomitant]
     Active Substance: LOPERAMIDE HYDROCHLORIDE
     Route: 065
     Dates: start: 20180926
  9. NEUPOGEN [Concomitant]
     Active Substance: FILGRASTIM
     Route: 065
     Dates: start: 20190617
  10. AMLODIPINE [Concomitant]
     Active Substance: AMLODIPINE BESYLATE
     Route: 065
     Dates: start: 201706
  11. LOMOTIL [Concomitant]
     Active Substance: ATROPINE SULFATE\DIPHENOXYLATE HYDROCHLORIDE
     Route: 065
     Dates: start: 20180926
  12. ONDANSETRON HYDROCHLORIDE. [Concomitant]
     Active Substance: ONDANSETRON HYDROCHLORIDE
     Route: 065
     Dates: start: 201708
  13. CLARITIN [Concomitant]
     Active Substance: LORATADINE
     Route: 065
     Dates: start: 20190617
  14. IRINOTECAN [Suspect]
     Active Substance: IRINOTECAN
     Indication: COLORECTAL CANCER METASTATIC
     Dosage: DURATION: 1 YEAR 4 MONTHS 28 DAYS
     Route: 042
     Dates: start: 20180908, end: 20200204
  15. METOPROLOL TARTRATE. [Concomitant]
     Active Substance: METOPROLOL TARTRATE
     Route: 065
     Dates: start: 201711
  16. XANAX [Concomitant]
     Active Substance: ALPRAZOLAM
     Route: 065
     Dates: start: 20180724

REACTIONS (1)
  - Loss of consciousness [Unknown]

NARRATIVE: CASE EVENT DATE: 20200206
